FAERS Safety Report 7546192-7 (Version None)
Quarter: 2011Q2

REPORT INFORMATION
  Report Type: 
  Country: None (occurrence: None)
  Receive Date: 20110614
  Receipt Date: 20031222
  Transmission Date: 20111010
  Serious: Yes (Life-Threatening, Hospitalization)
  Sender: FDA-Public Use
  Company Number: PHFR2003IE04480

PATIENT
  Sex: Male

DRUGS (2)
  1. CLOZAPINE [Suspect]
     Indication: SCHIZOPHRENIA
     Dosage: 500 MG/DAY
     Route: 048
     Dates: start: 19990315
  2. CLOZAPINE [Suspect]
     Dosage: 200MG MANE, 350MG NOCTE

REACTIONS (3)
  - RETCHING [None]
  - NAUSEA [None]
  - MYOCARDIAL INFARCTION [None]
